FAERS Safety Report 9464042 (Version 3)
Quarter: 2013Q4

REPORT INFORMATION
  Report Type: Spontaneous
  Country: IT (occurrence: IT)
  Receive Date: 20130819
  Receipt Date: 20131024
  Transmission Date: 20140711
  Serious: Yes (Hospitalization)
  Sender: FDA-Public Use
  Company Number: IT-MYLANLABS-2013S1012387

PATIENT
  Age: 70 Year
  Sex: Male

DRUGS (2)
  1. GEMCITABINE [Suspect]
     Indication: PANCREATIC CARCINOMA
     Dosage: CYCLIC
     Route: 042
     Dates: start: 20130101, end: 20130429
  2. LEVOFLOXACIN [Suspect]
     Indication: INFECTION
     Route: 048
     Dates: start: 20130501, end: 20130507

REACTIONS (4)
  - Renal failure [Recovering/Resolving]
  - Pleural effusion [Recovering/Resolving]
  - Oedema [Recovering/Resolving]
  - Thrombotic microangiopathy [Recovering/Resolving]
